FAERS Safety Report 22281915 (Version 1)
Quarter: 2023Q2

REPORT INFORMATION
  Report Type: Spontaneous
  Country: FR (occurrence: FR)
  Receive Date: 20230504
  Receipt Date: 20230504
  Transmission Date: 20230721
  Serious: Yes (Hospitalization, Other)
  Sender: FDA-Public Use
  Company Number: FR-ALKEM LABORATORIES LIMITED-IR-ALKEM-2023-04347

PATIENT
  Age: 60 Year
  Sex: Female

DRUGS (9)
  1. DALFAMPRIDINE [Interacting]
     Active Substance: DALFAMPRIDINE
     Indication: Multiple sclerosis
     Dosage: 10 MILLIGRAM, BID
     Route: 065
  2. BACLOFEN [Interacting]
     Active Substance: BACLOFEN
     Indication: Multiple sclerosis
     Dosage: 70 MILLIGRAM, QD (PER DAY FOR MANY YEARS)
     Route: 065
  3. BACLOFEN [Interacting]
     Active Substance: BACLOFEN
     Dosage: 30 MILLIGRAM, QD (POSOLOGY WAS REDUCED)
     Route: 065
  4. BIOTIN [Interacting]
     Active Substance: BIOTIN
     Indication: Product used for unknown indication
     Dosage: 100 MILLIGRAM, TID (THREE TIMES PER DAY)
     Route: 048
  5. INTERFERON BETA-1A [Concomitant]
     Active Substance: INTERFERON BETA-1A
     Indication: Multiple sclerosis
     Dosage: UNK
     Route: 030
  6. CYCLOPHOSPHAMIDE [Concomitant]
     Active Substance: CYCLOPHOSPHAMIDE
     Indication: Secondary progressive multiple sclerosis
     Dosage: UNK, (MONTHLY)
     Route: 042
  7. OXYBUTYNIN [Concomitant]
     Active Substance: OXYBUTYNIN
     Indication: Product used for unknown indication
     Dosage: UNK
     Route: 065
  8. NITROFURANTOIN [Concomitant]
     Active Substance: NITROFURANTOIN
     Indication: Product used for unknown indication
     Dosage: UNK
     Route: 065
  9. DIAZEPAM [Concomitant]
     Active Substance: DIAZEPAM
     Indication: Myoclonus
     Dosage: UNK
     Route: 042

REACTIONS (3)
  - Status epilepticus [Recovered/Resolved]
  - Drug interaction [Unknown]
  - Off label use [Unknown]
